FAERS Safety Report 4988250-7 (Version None)
Quarter: 2006Q2

REPORT INFORMATION
  Report Type: 
  Country: None (occurrence: None)
  Receive Date: 20060425
  Receipt Date: 20060413
  Transmission Date: 20061013
  Serious: Yes (Hospitalization)
  Sender: FDA-Public Use
  Company Number: 2006051299

PATIENT
  Age: 51 Year
  Sex: Female

DRUGS (5)
  1. AZITHROMYCIN [Suspect]
     Indication: NASOPHARYNGITIS
     Dosage: 500 MG (UNKNOWN); ORAL
     Route: 048
     Dates: start: 20060325, end: 20060328
  2. PL (PYRIDOXAL) [Concomitant]
  3. DASEN (SERRAPEPTASE) [Concomitant]
  4. TRANSAMIN (TRANEXAMIC ACID) [Concomitant]
  5. LOXONIN (LOXOPROFEN SODIUM) [Concomitant]

REACTIONS (5)
  - ANAEMIA [None]
  - HAEMATURIA [None]
  - MYALGIA [None]
  - MYOGLOBINURIA [None]
  - PYREXIA [None]
